FAERS Safety Report 6210206-7 (Version None)
Quarter: 2009Q2

REPORT INFORMATION
  Report Type: 
  Country: None (occurrence: None)
  Receive Date: 20090601
  Receipt Date: 20090529
  Transmission Date: 20091009
  Serious: Yes (Other)
  Sender: FDA-Public Use
  Company Number: JP-BAYER-200911431BYL

PATIENT
  Age: 71 Year
  Sex: Male
  Weight: 65 kg

DRUGS (9)
  1. NEXAVAR [Suspect]
     Indication: RENAL CELL CARCINOMA STAGE IV
     Dosage: UNIT DOSE: 200 MG
     Route: 048
     Dates: start: 20090209, end: 20090227
  2. NEXAVAR [Suspect]
     Dosage: UNIT DOSE: 200 MG
     Route: 048
     Dates: start: 20090415, end: 20090425
  3. NEXAVAR [Suspect]
     Dosage: UNIT DOSE: 200 MG
     Route: 048
     Dates: start: 20090428
  4. NEXAVAR [Suspect]
     Dosage: UNIT DOSE: 200 MG
     Route: 048
     Dates: start: 20090316, end: 20090412
  5. NEXAVAR [Suspect]
     Dosage: UNIT DOSE: 200 MG
     Route: 048
     Dates: start: 20090303, end: 20090309
  6. DIOVAN [Concomitant]
     Route: 048
     Dates: start: 20090209
  7. NORVASC [Concomitant]
     Route: 048
     Dates: start: 20090209
  8. STARSIS [Concomitant]
     Dosage: TOTAL DAILY DOSE: 270 MG
     Route: 048
     Dates: start: 20090209
  9. LENDORMIN [Concomitant]
     Route: 048
     Dates: start: 20090209

REACTIONS (11)
  - ABDOMINAL PAIN [None]
  - BLOOD AMYLASE INCREASED [None]
  - DIARRHOEA [None]
  - ERYTHEMA [None]
  - FOLLICULITIS [None]
  - HEPATIC ENZYME INCREASED [None]
  - LIPASE INCREASED [None]
  - PAIN IN EXTREMITY [None]
  - PALMAR-PLANTAR ERYTHRODYSAESTHESIA SYNDROME [None]
  - RASH [None]
  - SKIN EXFOLIATION [None]
